FAERS Safety Report 22252811 (Version 1)
Quarter: 2023Q2

REPORT INFORMATION
  Report Type: Report from Study
  Country: US (occurrence: US)
  Receive Date: 20230426
  Receipt Date: 20230426
  Transmission Date: 20230721
  Serious: Yes (Other)
  Sender: FDA-Public Use
  Company Number: US-ABBVIE-4739124

PATIENT
  Age: 66 Year
  Sex: Male

DRUGS (2)
  1. HUMIRA [Suspect]
     Active Substance: ADALIMUMAB
     Indication: Rheumatoid arthritis
     Route: 058
     Dates: start: 20161006
  2. PAXLOVID [Suspect]
     Active Substance: NIRMATRELVIR\RITONAVIR
     Indication: Product used for unknown indication
     Route: 065

REACTIONS (8)
  - Loss of consciousness [Unknown]
  - COVID-19 [Recovered/Resolved]
  - Eructation [Unknown]
  - Dizziness [Unknown]
  - Nasopharyngitis [Unknown]
  - Palpitations [Unknown]
  - Abdominal discomfort [Unknown]
  - Dry mouth [Unknown]

NARRATIVE: CASE EVENT DATE: 20230418
